FAERS Safety Report 9002622 (Version 1)
Quarter: 2013Q1

REPORT INFORMATION
  Report Type: Report from Study
  Country: US (occurrence: US)
  Receive Date: 20130107
  Receipt Date: 20130107
  Transmission Date: 20140127
  Serious: Yes (Death)
  Sender: FDA-Public Use
  Company Number: US-ASTELLAS-2013US000165

PATIENT
  Sex: Male

DRUGS (2)
  1. ERLOTINIB TABLET [Suspect]
     Indication: NEOPLASM MALIGNANT
     Dosage: UNK
     Route: 048
  2. BEVACIZUMAB [Suspect]
     Indication: NEOPLASM MALIGNANT
     Dosage: UNK
     Route: 065

REACTIONS (1)
  - Death [Fatal]
